FAERS Safety Report 15302993 (Version 1)
Quarter: 2018Q3

REPORT INFORMATION
  Report Type: Spontaneous
  Country: IT (occurrence: IT)
  Receive Date: 20180821
  Receipt Date: 20180821
  Transmission Date: 20181010
  Serious: Yes (Other)
  Sender: FDA-Public Use
  Company Number: IT-009507513-1808ITA006934

PATIENT
  Age: 76 Year
  Sex: Female

DRUGS (1)
  1. IVEMEND [Suspect]
     Active Substance: FOSAPREPITANT DIMEGLUMINE
     Indication: RECTAL ADENOCARCINOMA
     Dosage: IN TOTAL
     Route: 042
     Dates: start: 20180720, end: 20180720

REACTIONS (2)
  - Erythema [Recovered/Resolved]
  - Laryngospasm [Recovered/Resolved]

NARRATIVE: CASE EVENT DATE: 20180720
